FAERS Safety Report 20390569 (Version 1)
Quarter: 2022Q1

REPORT INFORMATION
  Report Type: Spontaneous
  Country: US (occurrence: US)
  Receive Date: 20220128
  Receipt Date: 20220128
  Transmission Date: 20220423
  Serious: Yes (Other)
  Sender: FDA-Public Use
  Company Number: US-BAYER-2022A014030

PATIENT
  Age: 73 Year
  Sex: Female

DRUGS (1)
  1. ALKA-SELTZER PLUS MAXIMUM STRENGTH DAY AND NIGHT COLD AND FLU POWERMAX [Suspect]
     Active Substance: ACETAMINOPHEN\DEXTROMETHORPHAN HYDROBROMIDE\DOXYLAMINE SUCCINATE\PHENYLEPHRINE HYDROCHLORIDE
     Dosage: 1 DF
     Route: 048
     Dates: start: 20220126, end: 20220126

REACTIONS (4)
  - Choking [None]
  - Retching [None]
  - Panic reaction [None]
  - Sensation of foreign body [None]

NARRATIVE: CASE EVENT DATE: 20220126
